FAERS Safety Report 25259507 (Version 4)
Quarter: 2025Q2

REPORT INFORMATION
  Report Type: Spontaneous
  Country: US (occurrence: US)
  Receive Date: 20250501
  Receipt Date: 20250529
  Transmission Date: 20250717
  Serious: No
  Sender: PFIZER
  Company Number: US-PFIZER INC-202500088738

PATIENT
  Age: 12 Year
  Sex: Male

DRUGS (1)
  1. GENOTROPIN [Suspect]
     Active Substance: SOMATROPIN
     Indication: Growth hormone deficiency
     Dosage: EVERY NIGHT AT BEDTIME, JUST INCREASED MONDAY, TO 1.3MG
     Dates: start: 202405

REACTIONS (3)
  - Drug dose omission by device [Unknown]
  - Device issue [Unknown]
  - Product label issue [Unknown]
